FAERS Safety Report 5762596-7 (Version None)
Quarter: 2008Q2

REPORT INFORMATION
  Report Type: 
  Country: None (occurrence: None)
  Receive Date: 20080609
  Receipt Date: 20080603
  Transmission Date: 20081010
  Serious: Yes (Death)
  Sender: FDA-Public Use
  Company Number: FR-AVENTIS-200812100FR

PATIENT
  Age: 90 Year
  Sex: Female

DRUGS (11)
  1. LOVENOX [Suspect]
     Route: 058
     Dates: start: 20080314, end: 20080324
  2. SINTROM [Suspect]
     Route: 048
     Dates: start: 20080314, end: 20080324
  3. SINTROM [Suspect]
     Route: 048
     Dates: start: 20080315, end: 20080323
  4. MEMANTINE HCL [Concomitant]
     Route: 048
     Dates: end: 20080331
  5. EQUANIL [Concomitant]
     Indication: ANXIETY
     Route: 048
  6. MODOPAR [Concomitant]
     Route: 048
     Dates: start: 19990101
  7. ACETAMINOPHEN [Concomitant]
     Indication: PAIN
     Route: 042
     Dates: start: 20080325, end: 20080325
  8. DOLIPRANE [Concomitant]
     Indication: PAIN
     Route: 048
     Dates: start: 20080326
  9. HEMIGOXINE [Concomitant]
     Indication: ATRIAL FIBRILLATION
     Route: 048
     Dates: start: 20080327
  10. MORPHINE [Concomitant]
     Indication: PAIN
     Route: 058
     Dates: start: 20080402, end: 20080403
  11. SCOPODERM                          /00008701/ [Concomitant]
     Route: 062
     Dates: start: 20080402, end: 20080403

REACTIONS (3)
  - ANAEMIA [None]
  - DRUG INTERACTION [None]
  - HAEMATOMA [None]
